FAERS Safety Report 17350013 (Version 1)
Quarter: 2020Q1

REPORT INFORMATION
  Report Type: Spontaneous
  Country: US (occurrence: US)
  Receive Date: 20200130
  Receipt Date: 20200130
  Transmission Date: 20200409
  Serious: Yes (Hospitalization)
  Sender: FDA-Public Use
  Company Number: US-TEVA-2020-US-1176769

PATIENT
  Age: 62 Year
  Sex: Female

DRUGS (17)
  1. TRAMADOL. [Concomitant]
     Active Substance: TRAMADOL
  2. MELOXICAM. [Concomitant]
     Active Substance: MELOXICAM
  3. DICYCLOMINE [Concomitant]
     Active Substance: DICYCLOMINE HYDROCHLORIDE
  4. ESCITALOPRAM [Concomitant]
     Active Substance: ESCITALOPRAM OXALATE
  5. ARIPIPRAZOLE. [Concomitant]
     Active Substance: ARIPIPRAZOLE
  6. LAMOTRIGINE. [Concomitant]
     Active Substance: LAMOTRIGINE
  7. PREDNISONE. [Concomitant]
     Active Substance: PREDNISONE
  8. FLUTICASONE. [Concomitant]
     Active Substance: FLUTICASONE
  9. LAMICTAL [Concomitant]
     Active Substance: LAMOTRIGINE
  10. COPAXONE [Suspect]
     Active Substance: GLATIRAMER ACETATE
     Indication: MULTIPLE SCLEROSIS
     Dosage: COPAXONE 40MG MON, WED + FRIDAY
     Route: 058
     Dates: start: 20150521
  11. ABILIFY [Concomitant]
     Active Substance: ARIPIPRAZOLE
  12. PANTOPRAZOLE [Concomitant]
     Active Substance: PANTOPRAZOLE
  13. TRAZODONE [Concomitant]
     Active Substance: TRAZODONE HYDROCHLORIDE
  14. HYDROXYCHLOR [Concomitant]
     Active Substance: HYDROXYCHLOROQUINE
  15. LORAZEPAM. [Concomitant]
     Active Substance: LORAZEPAM
  16. MYRBETRIQ [Concomitant]
     Active Substance: MIRABEGRON
  17. SULFASALAZINE DELAYED-RELEASE [Concomitant]
     Active Substance: SULFASALAZINE

REACTIONS (1)
  - Intestinal obstruction [Not Recovered/Not Resolved]

NARRATIVE: CASE EVENT DATE: 20200121
